FAERS Safety Report 16959869 (Version 2)
Quarter: 2019Q4

REPORT INFORMATION
  Report Type: Spontaneous
  Country: US (occurrence: US)
  Receive Date: 20191025
  Receipt Date: 20191127
  Transmission Date: 20200122
  Serious: No
  Sender: FDA-Public Use
  Company Number: US-GLAXOSMITHKLINE-US2019188463

PATIENT
  Sex: Female

DRUGS (1)
  1. FLONASE SENSIMIST ALLERGY RELIEF [Suspect]
     Active Substance: FLUTICASONE FUROATE
     Indication: MULTIPLE ALLERGIES
     Dosage: UNK, QD

REACTIONS (8)
  - Hypoaesthesia oral [Unknown]
  - Vision blurred [Unknown]
  - Headache [Unknown]
  - Dysgeusia [Unknown]
  - Ageusia [Unknown]
  - Off label use [Unknown]
  - Feeling cold [Unknown]
  - Product complaint [Unknown]
